FAERS Safety Report 21312256 (Version 1)
Quarter: 2022Q3

REPORT INFORMATION
  Report Type: Spontaneous
  Country: US (occurrence: None)
  Receive Date: 20220909
  Receipt Date: 20220909
  Transmission Date: 20221027
  Serious: No
  Sender: FDA-Public Use
  Company Number: US-ARIS GLOBAL-202205-0857

PATIENT
  Sex: Female

DRUGS (17)
  1. OXERVATE [Suspect]
     Active Substance: CENEGERMIN-BKBJ
     Indication: Neurotrophic keratopathy
     Route: 047
     Dates: start: 20220505
  2. PEPCID AC [Concomitant]
     Active Substance: FAMOTIDINE
  3. FLONASE ALLERGY RELIEF [Concomitant]
     Active Substance: FLUTICASONE PROPIONATE
  4. LEVOMEFOLIC ACID [Concomitant]
     Active Substance: LEVOMEFOLIC ACID
  5. CALCIUM-MAGNESIUM-ZINC-VIT D [Concomitant]
  6. LUTEIN [Concomitant]
     Active Substance: LUTEIN
  7. CITRACAL-D3 [Concomitant]
     Dosage: 250MG-5MCG
  8. BIOTIN [Concomitant]
     Active Substance: BIOTIN
  9. XYLITOL [Concomitant]
     Active Substance: XYLITOL
  10. REFRESH OPTIVE MEGA-3 [Concomitant]
     Active Substance: CARBOXYMETHYLCELLULOSE SODIUM\GLYCERIN\POLYSORBATE 80
  11. CEQUA [Concomitant]
     Active Substance: CYCLOSPORINE
  12. ONDANSETRON HCL [Concomitant]
     Active Substance: ONDANSETRON HYDROCHLORIDE
  13. PILOCARPINE HYDROCHLORIDE [Concomitant]
     Active Substance: PILOCARPINE HYDROCHLORIDE
  14. GABAPENTIN [Concomitant]
     Active Substance: GABAPENTIN
  15. CLONAZEPAM [Concomitant]
     Active Substance: CLONAZEPAM
  16. MIRTAZAPINE [Concomitant]
     Active Substance: MIRTAZAPINE
  17. PAROXETINE HYDROCHLORIDE [Concomitant]
     Active Substance: PAROXETINE HYDROCHLORIDE

REACTIONS (1)
  - Eye pain [Unknown]
